FAERS Safety Report 5217535-4 (Version None)
Quarter: 2007Q1

REPORT INFORMATION
  Report Type: 
  Country: None (occurrence: None)
  Receive Date: 20070119
  Receipt Date: 20070112
  Transmission Date: 20070707
  Serious: Yes (Life-Threatening)
  Sender: FDA-Public Use
  Company Number: 2007-152929-NL

PATIENT
  Age: 24 Year
  Sex: Male

DRUGS (5)
  1. ROCURONIUM BROMIDE [Suspect]
     Indication: MUSCLE RELAXANT THERAPY
     Dosage: INTRAVENOUS BOLUS
     Route: 040
     Dates: start: 20061117, end: 20061117
  2. CHLORHEXIDINE [Suspect]
     Indication: INFECTION PROPHYLAXIS
     Dosage: TOPICAL
     Route: 061
     Dates: start: 20061117, end: 20061117
  3. PROPOFOL [Concomitant]
  4. SUFENTANIL CITRATE [Concomitant]
  5. LIDOCAINE [Concomitant]

REACTIONS (2)
  - ANAPHYLACTIC SHOCK [None]
  - TACHYCARDIA [None]
